FAERS Safety Report 5313907-8 (Version None)
Quarter: 2007Q2

REPORT INFORMATION
  Report Type: 
  Country: None (occurrence: None)
  Receive Date: 20070501
  Receipt Date: 20070424
  Transmission Date: 20071010
  Serious: Yes (Other)
  Sender: FDA-Public Use
  Company Number: 2007UW07086

PATIENT
  Age: 69 Year
  Sex: Female

DRUGS (5)
  1. SYMBICORT [Suspect]
     Indication: EMPHYSEMA
     Dosage: 200/6, 2 PUFFS Q12H AND Q6H PRN (MAX 8 DOSES) IH
     Dates: start: 20070201
  2. SPIRIVA [Suspect]
     Dates: start: 20070201
  3. TRIAZIDE [Concomitant]
  4. TEMAZEPAM [Concomitant]
  5. ORAL STERIODS [Concomitant]

REACTIONS (2)
  - PHOTOPSIA [None]
  - VITREOUS FLOATERS [None]
